FAERS Safety Report 12414230 (Version 2)
Quarter: 2016Q2

REPORT INFORMATION
  Report Type: Report from Study
  Country: US (occurrence: US)
  Receive Date: 20160528
  Receipt Date: 20160614
  Transmission Date: 20160815
  Serious: Yes (Other)
  Sender: FDA-Public Use
  Company Number: US-JNJFOC-20160518695

PATIENT
  Sex: Female

DRUGS (3)
  1. MOTRIN [Suspect]
     Active Substance: IBUPROFEN
     Route: 065
  2. XARELTO [Suspect]
     Active Substance: RIVAROXABAN
     Indication: DEEP VEIN THROMBOSIS
     Route: 048
  3. MOTRIN [Suspect]
     Active Substance: IBUPROFEN
     Indication: PAIN
     Route: 065

REACTIONS (2)
  - Rib fracture [Unknown]
  - Epistaxis [Unknown]
